FAERS Safety Report 7437268-3 (Version None)
Quarter: 2011Q2

REPORT INFORMATION
  Report Type: 
  Country: None (occurrence: None)
  Receive Date: 20110426
  Receipt Date: 20110419
  Transmission Date: 20111010
  Serious: Yes (Other)
  Sender: FDA-Public Use
  Company Number: US-KINGPHARMUSA00001-K201100480

PATIENT
  Sex: Female

DRUGS (2)
  1. ALTACE [Suspect]
     Dosage: 15MG DAILY, 10MG QAM + 5MG QPM
     Route: 048
  2. ALTACE [Suspect]
     Dosage: 5 MG, BID
     Route: 048

REACTIONS (2)
  - HYPERTENSIVE CRISIS [None]
  - HEART RATE ABNORMAL [None]
